FAERS Safety Report 14846125 (Version 4)
Quarter: 2019Q2

REPORT INFORMATION
  Report Type: Spontaneous
  Country: US (occurrence: US)
  Receive Date: 20180504
  Receipt Date: 20190417
  Transmission Date: 20190711
  Serious: Yes (Other)
  Sender: FDA-Public Use
  Company Number: US-ASTRAZENECA-2018SE57043

PATIENT
  Age: 25908 Day
  Sex: Female

DRUGS (28)
  1. HYDROCODON-ACETAMINOPHEN [Concomitant]
     Active Substance: ACETAMINOPHEN\HYDROCODONE
     Dosage: 5-325
  2. PREDNISONE. [Concomitant]
     Active Substance: PREDNISONE
     Indication: ANTIINFLAMMATORY THERAPY
     Dates: start: 201101
  3. ALLOPURINOL. [Concomitant]
     Active Substance: ALLOPURINOL
     Indication: BLOOD URIC ACID DECREASED
     Dates: start: 201111, end: 201603
  4. DIOVAN [Concomitant]
     Active Substance: VALSARTAN
     Indication: HYPERTENSION
     Dates: start: 200912, end: 201602
  5. CLOTRIMAZOLE AND BETAMETHASONE DIPROPIONATE [Concomitant]
     Active Substance: BETAMETHASONE\BETAMETHASONE DIPROPIONATE\CLOTRIMAZOLE
     Dosage: CREAM
  6. CALCITRIOL. [Concomitant]
     Active Substance: CALCITRIOL
  7. NEXIUM [Suspect]
     Active Substance: ESOMEPRAZOLE MAGNESIUM
     Indication: GASTROOESOPHAGEAL REFLUX DISEASE
     Route: 048
     Dates: start: 2009, end: 2016
  8. NEXIUM [Suspect]
     Active Substance: ESOMEPRAZOLE MAGNESIUM
     Indication: GASTROOESOPHAGEAL REFLUX DISEASE
     Route: 048
     Dates: start: 200911, end: 201603
  9. BENZONATATE. [Concomitant]
     Active Substance: BENZONATATE
     Dosage: 100 MG CAPSULE
  10. VITAMIN D2 [Concomitant]
     Active Substance: ERGOCALCIFEROL
     Dosage: 1.25 MG
  11. METFORMIN [Concomitant]
     Active Substance: METFORMIN HYDROCHLORIDE
     Indication: TYPE 2 DIABETES MELLITUS
     Dates: start: 201103, end: 201105
  12. FUROSEMIDE. [Concomitant]
     Active Substance: FUROSEMIDE
     Indication: OEDEMA
     Dates: start: 201404, end: 201605
  13. VOLTAREN [Concomitant]
     Active Substance: DICLOFENAC SODIUM
     Dosage: 1 % GEL
  14. AZITHROMYCIN ANHYDROUS. [Concomitant]
     Active Substance: AZITHROMYCIN ANHYDROUS
     Dosage: 250 MG TABLET
  15. PRAVASTATIN. [Concomitant]
     Active Substance: PRAVASTATIN
     Indication: BLOOD CHOLESTEROL INCREASED
     Dates: start: 201303, end: 201605
  16. TRADJENTA [Concomitant]
     Active Substance: LINAGLIPTIN
     Dosage: 5 MG TAB
  17. AMLODIPINE BESYLATE. [Concomitant]
     Active Substance: AMLODIPINE BESYLATE
     Dosage: 5 MG TAB
  18. TYLENOL [Concomitant]
     Active Substance: ACETAMINOPHEN
     Route: 048
  19. CLOBETASOL [Concomitant]
     Active Substance: CLOBETASOL
     Dosage: 0.05% CREAM
  20. OMEPRAZOLE. [Suspect]
     Active Substance: OMEPRAZOLE
     Indication: GASTROOESOPHAGEAL REFLUX DISEASE
     Dosage: 40.0MG UNKNOWN
     Route: 065
     Dates: start: 2016
  21. METOPROLOL. [Concomitant]
     Active Substance: METOPROLOL
     Indication: HYPERTENSION
     Dates: start: 201306, end: 201602
  22. IBUPROFEN. [Concomitant]
     Active Substance: IBUPROFEN
     Indication: ANALGESIC THERAPY
     Dates: start: 2000
  23. COLCHICINE. [Concomitant]
     Active Substance: COLCHICINE
     Dosage: 0.6 MG
  24. GLIPIZIDE. [Concomitant]
     Active Substance: GLIPIZIDE
     Dosage: 2.5 MG TAB
  25. BYDUREON [Concomitant]
     Active Substance: EXENATIDE
     Dosage: 2 MG PEN INJECT
  26. SIMVASTATIN. [Concomitant]
     Active Substance: SIMVASTATIN
     Indication: BLOOD CHOLESTEROL INCREASED
     Dates: start: 200911, end: 201305
  27. JANUVIA [Concomitant]
     Active Substance: SITAGLIPTIN PHOSPHATE
     Indication: TYPE 2 DIABETES MELLITUS
     Dates: start: 201109, end: 201302
  28. TRULICITY [Concomitant]
     Active Substance: DULAGLUTIDE
     Dosage: 1.5 MG/0.5 ML PEN

REACTIONS (3)
  - Hyperparathyroidism secondary [Unknown]
  - Chronic kidney disease [Not Recovered/Not Resolved]
  - End stage renal disease [Unknown]

NARRATIVE: CASE EVENT DATE: 20100308
